FAERS Safety Report 19962798 (Version 1)
Quarter: 2021Q4

REPORT INFORMATION
  Report Type: Spontaneous
  Country: US (occurrence: US)
  Receive Date: 20211018
  Receipt Date: 20211018
  Transmission Date: 20220304
  Serious: No
  Sender: FDA-Public Use
  Company Number: US-JNJFOC-20210940601

PATIENT
  Age: 19 Year
  Sex: Female
  Weight: 65.83 kg

DRUGS (7)
  1. INVEGA SUSTENNA [Suspect]
     Active Substance: PALIPERIDONE PALMITATE
     Indication: Schizoaffective disorder
     Route: 030
  2. INVEGA SUSTENNA [Suspect]
     Active Substance: PALIPERIDONE PALMITATE
  3. INVEGA SUSTENNA [Suspect]
     Active Substance: PALIPERIDONE PALMITATE
  4. BUSPAR [Concomitant]
     Active Substance: BUSPIRONE HYDROCHLORIDE
     Route: 065
  5. APLENZIN [Concomitant]
     Active Substance: BUPROPION HYDROBROMIDE
     Route: 065
  6. TOPAMAX [Concomitant]
     Active Substance: TOPIRAMATE
     Route: 065
  7. INVEGA [Concomitant]
     Active Substance: PALIPERIDONE
     Route: 048

REACTIONS (8)
  - Dizziness [Unknown]
  - Flushing [Unknown]
  - Feeling hot [Unknown]
  - Hyperhidrosis [Unknown]
  - Tachycardia [Unknown]
  - Cyanosis [Unknown]
  - Chest discomfort [Unknown]
  - Hypotonia [Unknown]
